FAERS Safety Report 7959179-7 (Version None)
Quarter: 2011Q4

REPORT INFORMATION
  Report Type: 
  Country: None (occurrence: None)
  Receive Date: 20111206
  Receipt Date: 20111129
  Transmission Date: 20120403
  Serious: Yes (Disabling, Other)
  Sender: FDA-Public Use
  Company Number: GB-SANOFI-AVENTIS-2011SA010799

PATIENT
  Age: 76 Year
  Sex: Male

DRUGS (4)
  1. INDAPAMIDE [Concomitant]
     Route: 065
  2. ASPIRIN [Concomitant]
     Route: 065
  3. MULTAQ [Suspect]
     Indication: ATRIAL FLUTTER
     Route: 048
     Dates: start: 20101021, end: 20101109
  4. MULTAQ [Suspect]
     Indication: ATRIAL FIBRILLATION
     Route: 048
     Dates: start: 20101021, end: 20101109

REACTIONS (4)
  - SWELLING [None]
  - BLISTER [None]
  - DERMATITIS BULLOUS [None]
  - GENERALISED OEDEMA [None]
